FAERS Safety Report 6367486-7 (Version None)
Quarter: 2009Q3

REPORT INFORMATION
  Report Type: 
  Country: None (occurrence: None)
  Receive Date: 20090915
  Receipt Date: 20090908
  Transmission Date: 20100115
  Serious: Yes (Hospitalization)
  Sender: FDA-Public Use
  Company Number: A0806245A

PATIENT
  Age: 49 Year
  Sex: Female

DRUGS (2)
  1. ASPIRIN + CAFFEINE + SALICYLAMIDE POWDER (ASPIRIN+CAFFEINE+SALICYLA) [Suspect]
     Dosage: ORAL
     Route: 048
  2. BLOOD PRESSURE MEDICATION [Concomitant]

REACTIONS (5)
  - DRUG DEPENDENCE [None]
  - HEADACHE [None]
  - OESOPHAGEAL ULCER [None]
  - PHARYNGEAL ULCERATION [None]
  - REBOUND EFFECT [None]
